FAERS Safety Report 6357646-3 (Version None)
Quarter: 2009Q3

REPORT INFORMATION
  Report Type: 
  Country: None (occurrence: None)
  Receive Date: 20090916
  Receipt Date: 20090617
  Transmission Date: 20100115
  Serious: Yes (Other)
  Sender: FDA-Public Use
  Company Number: US-AMGEN-US347565

PATIENT
  Sex: Female
  Weight: 69 kg

DRUGS (4)
  1. NPLATE [Suspect]
     Indication: IDIOPATHIC THROMBOCYTOPENIC PURPURA
     Route: 065
     Dates: start: 20081125, end: 20090121
  2. CORTICOSTEROIDS [Concomitant]
     Route: 065
  3. IMMUNOGLOBULINS [Concomitant]
     Dates: start: 20080515, end: 20081020
  4. CYCLOPHOSPHAMIDE [Concomitant]
     Route: 065

REACTIONS (1)
  - DRUG INEFFECTIVE [None]
